FAERS Safety Report 23421238 (Version 1)
Quarter: 2024Q1

REPORT INFORMATION
  Report Type: Report from Study
  Country: US (occurrence: US)
  Receive Date: 20240119
  Receipt Date: 20240119
  Transmission Date: 20240409
  Serious: Yes (Other)
  Sender: FDA-Public Use
  Company Number: US-INSMED, INC.-2023-03783-US

PATIENT
  Sex: Male

DRUGS (1)
  1. ARIKAYCE [Suspect]
     Active Substance: AMIKACIN
     Indication: Mycobacterial infection
     Dosage: 590 MILLIGRAM, QD
     Route: 055
     Dates: start: 202308

REACTIONS (8)
  - Heart valve stenosis [Not Recovered/Not Resolved]
  - Weight decreased [Unknown]
  - Appetite disorder [Unknown]
  - Throat clearing [Unknown]
  - Salivary hypersecretion [Unknown]
  - Sputum increased [Unknown]
  - Aphonia [Unknown]
  - Productive cough [Not Recovered/Not Resolved]

NARRATIVE: CASE EVENT DATE: 20230101
